FAERS Safety Report 20889043 (Version 3)
Quarter: 2022Q2

REPORT INFORMATION
  Report Type: Report from Study
  Country: CZ (occurrence: CZ)
  Receive Date: 20220530
  Receipt Date: 20220628
  Transmission Date: 20220721
  Serious: Yes (Hospitalization, Other)
  Sender: FDA-Public Use
  Company Number: CZ-BRISTOL-MYERS SQUIBB COMPANY-2022-035468

PATIENT
  Age: 68 Year
  Sex: Female

DRUGS (9)
  1. POMALIDOMIDE [Suspect]
     Active Substance: POMALIDOMIDE
     Indication: Plasma cell myeloma
     Dosage: 21 DAYS CYCLE
     Route: 048
     Dates: start: 20211108, end: 20220327
  2. DEXAMETHASONE [Suspect]
     Active Substance: DEXAMETHASONE
     Indication: Plasma cell myeloma
     Dosage: DAYS 1,8,15 OF 21 DAYS CYCLE
     Route: 048
     Dates: start: 20211108, end: 20220318
  3. BORTEZOMIB [Suspect]
     Active Substance: BORTEZOMIB
     Indication: Plasma cell myeloma
     Dosage: DAYS 1,4,8,11 OF 21 DAYS CYCLE
     Route: 058
     Dates: start: 20211108, end: 20220317
  4. OXYCODONE [Concomitant]
     Active Substance: OXYCODONE
     Indication: Pain
     Route: 048
     Dates: start: 20180213
  5. PERINDOPRIL ARGININE [Concomitant]
     Active Substance: PERINDOPRIL ARGININE
     Indication: Product used for unknown indication
     Route: 065
     Dates: start: 20210127, end: 20220420
  6. NADROPARIN CALCIUM [Concomitant]
     Active Substance: NADROPARIN CALCIUM
     Indication: Product used for unknown indication
     Route: 065
     Dates: start: 20211108
  7. OMEPRAZOLE [Concomitant]
     Active Substance: OMEPRAZOLE
     Indication: Product used for unknown indication
     Route: 065
     Dates: start: 2015
  8. ZOVIRAX [Concomitant]
     Active Substance: ACYCLOVIR
     Indication: Product used for unknown indication
     Route: 065
     Dates: start: 20191203, end: 20220420
  9. CLARITHROMYCIN [Concomitant]
     Active Substance: CLARITHROMYCIN
     Indication: Product used for unknown indication
     Route: 065
     Dates: start: 20220228, end: 20220313

REACTIONS (1)
  - Liver disorder [Recovered/Resolved]

NARRATIVE: CASE EVENT DATE: 20220321
